FAERS Safety Report 8016605-5 (Version None)
Quarter: 2011Q4

REPORT INFORMATION
  Report Type: 
  Country: None (occurrence: None)
  Receive Date: 20111231
  Receipt Date: 20111226
  Transmission Date: 20120403
  Serious: Yes (Other)
  Sender: FDA-Public Use
  Company Number: US-ACCORD-011840

PATIENT

DRUGS (1)
  1. TACROLIMUS [Suspect]

REACTIONS (1)
  - THROMBOTIC MICROANGIOPATHY [None]
